FAERS Safety Report 9759300 (Version 1)
Quarter: 2013Q4

REPORT INFORMATION
  Report Type: Spontaneous
  Country: US (occurrence: None)
  Receive Date: 20131216
  Receipt Date: 20131216
  Transmission Date: 20140711
  Serious: Yes (Other)
  Sender: FDA-Public Use
  Company Number: 163-21880-12041175

PATIENT
  Sex: 0

DRUGS (3)
  1. REVLIMID [Suspect]
     Dosage: 25 MG, ON DAYS 1-21, PO?15 MG, PO? ? ? ? ? ? ? ? ? ?
  2. DEXAMETHASONE [Suspect]
     Dosage: 40 MG, ON DAYS 1, 8, 15 AND 22, UNK? ? ? ? ? ? ? ? ? ? ?
  3. MLN9708 [Suspect]
     Dosage: 1.68 MG/M2, WEEKLY ON DAYS 1, 8, AND 15, PO ?2.23 MG/M2, WEEKLY ON DAYS 1, 8, AND 15, PO ?2.97 MG/M2

REACTIONS (8)
  - Syncope [None]
  - Rash erythematous [None]
  - Hypotension [None]
  - Deep vein thrombosis [None]
  - Gastrointestinal haemorrhage [None]
  - Neuropathy peripheral [None]
  - Rash maculo-papular [None]
  - Rash erythematous [None]
